FAERS Safety Report 7466775-2 (Version None)
Quarter: 2011Q2

REPORT INFORMATION
  Report Type: 
  Country: None (occurrence: None)
  Receive Date: 20110428
  Receipt Date: 20110414
  Transmission Date: 20111010
  Serious: Yes (Other)
  Sender: FDA-Public Use
  Company Number: 022409

PATIENT
  Age: 26 Year
  Sex: Male

DRUGS (2)
  1. KEPPRA [Suspect]
     Indication: CONVULSION
     Dosage: (ORAL)
     Route: 048
     Dates: start: 20100301
  2. CORTICOSTEROIDS [Concomitant]

REACTIONS (1)
  - MELAENA [None]
